FAERS Safety Report 8618866-8 (Version None)
Quarter: 2012Q3

REPORT INFORMATION
  Report Type: 
  Country: None (occurrence: None)
  Receive Date: 20120824
  Receipt Date: 20120821
  Transmission Date: 20120928
  Serious: Yes (Hospitalization, Other)
  Sender: FDA-Public Use
  Company Number: US-PFIZER INC-2012205828

PATIENT
  Age: 48 Year
  Sex: Male
  Weight: 102 kg

DRUGS (10)
  1. COREG [Concomitant]
     Indication: BLOOD PRESSURE ABNORMAL
     Dosage: UNK,2X/DAY
     Route: 048
  2. PANTOPRAZOLE [Concomitant]
     Indication: PROPHYLAXIS
     Dosage: UNK
     Route: 048
  3. ALPRAZOLAM [Concomitant]
     Dosage: UNK,DAILY
     Route: 048
  4. ASPIRIN [Concomitant]
     Dosage: 325 MG, UNK
     Route: 048
  5. NEURONTIN [Suspect]
     Indication: NEUROPATHY PERIPHERAL
     Dosage: 500 MG IN THE MORNING, 300 MG IN NOON,400 MG AT NIGHT ,3X/DAY
     Route: 048
  6. DIPYRIDAMOLE [Concomitant]
     Indication: ANTICOAGULANT THERAPY
     Dosage: UNK
  7. HUMULIN N [Concomitant]
     Indication: BLOOD GLUCOSE ABNORMAL
     Dosage: 50 UNITS IN THE MORNING AND 30 UNITS AT NIGHT , 2X/DAY
  8. NORVASC [Suspect]
     Indication: BLOOD PRESSURE ABNORMAL
     Dosage: HALF OF 5 MG TABLET IN THE MORNING AND ANOTHER HALF OF 5 MG TABLET AT NIGHT
     Route: 048
  9. AMITIZA [Concomitant]
     Dosage: UNK
     Route: 048
  10. CRESTOR [Concomitant]
     Dosage: UNK,DAILY
     Route: 048

REACTIONS (4)
  - CEREBROVASCULAR ACCIDENT [None]
  - HAEMATOLOGY TEST ABNORMAL [None]
  - MYOCARDIAL INFARCTION [None]
  - THROMBOSIS [None]
